FAERS Safety Report 17460256 (Version 1)
Quarter: 2020Q1

REPORT INFORMATION
  Report Type: Spontaneous
  Country: US (occurrence: US)
  Receive Date: 20200226
  Receipt Date: 20200226
  Transmission Date: 20200409
  Serious: No
  Sender: FDA-Public Use
  Company Number: US-PFIZER INC-2020080947

PATIENT
  Age: 4 Decade
  Sex: Female

DRUGS (3)
  1. SPIRONOLACTONE. [Suspect]
     Active Substance: SPIRONOLACTONE
     Dosage: 50 MG, UNK
  2. SPIRONOLACTONE. [Suspect]
     Active Substance: SPIRONOLACTONE
     Dosage: 25 MG, UNK
  3. SPIRONOLACTONE. [Suspect]
     Active Substance: SPIRONOLACTONE
     Dosage: 25 MG, UNK

REACTIONS (5)
  - Renal disorder [Unknown]
  - Pruritus [Unknown]
  - Blood potassium increased [Unknown]
  - Blood pressure inadequately controlled [Unknown]
  - Abdominal distension [Unknown]

NARRATIVE: CASE EVENT DATE: 202001
